FAERS Safety Report 7777914-8 (Version None)
Quarter: 2011Q3

REPORT INFORMATION
  Report Type: 
  Country: None (occurrence: None)
  Receive Date: 20110926
  Receipt Date: 20110919
  Transmission Date: 20111222
  Serious: No
  Sender: FDA-Public Use
  Company Number: US-BIOGENIDEC-2011BI035969

PATIENT
  Age: 36 Year
  Sex: Female

DRUGS (2)
  1. TYSABRI [Suspect]
     Indication: MULTIPLE SCLEROSIS
     Route: 042
     Dates: start: 20110826
  2. AVONEX [Concomitant]
     Indication: MULTIPLE SCLEROSIS
     Route: 030
     Dates: start: 20040321

REACTIONS (9)
  - STRESS [None]
  - MENSTRUATION IRREGULAR [None]
  - NAUSEA [None]
  - HEADACHE [None]
  - MUSCULAR WEAKNESS [None]
  - FATIGUE [None]
  - ABDOMINAL PAIN LOWER [None]
  - PAIN IN EXTREMITY [None]
  - BACK PAIN [None]
